FAERS Safety Report 21063471 (Version 1)
Quarter: 2022Q3

REPORT INFORMATION
  Report Type: Spontaneous
  Country: DE (occurrence: DE)
  Receive Date: 20220711
  Receipt Date: 20220711
  Transmission Date: 20221026
  Serious: Yes (Hospitalization)
  Sender: FDA-Public Use
  Company Number: DE-NOVARTISPH-NVSC2022DE155337

PATIENT
  Sex: Female

DRUGS (1)
  1. CIPROFLOXACIN [Suspect]
     Active Substance: CIPROFLOXACIN
     Indication: Cystitis noninfective
     Dosage: UNK
     Route: 065
     Dates: start: 2022

REACTIONS (5)
  - Bladder pain [Recovered/Resolved]
  - Feeling drunk [Recovering/Resolving]
  - Eye disorder [Recovering/Resolving]
  - Aphasia [Recovering/Resolving]
  - Anxiety disorder [Unknown]

NARRATIVE: CASE EVENT DATE: 20220101
